FAERS Safety Report 7153410-6 (Version None)
Quarter: 2010Q4

REPORT INFORMATION
  Report Type: 
  Country: None (occurrence: None)
  Receive Date: 20101213
  Receipt Date: 20101208
  Transmission Date: 20110411
  Serious: Yes (Other)
  Sender: FDA-Public Use
  Company Number: A0870658A

PATIENT
  Age: 47 Year
  Sex: Male

DRUGS (8)
  1. EPIVIR-HBV [Suspect]
     Dosage: 1TAB PER DAY
     Route: 048
     Dates: start: 19981201
  2. CYCLOSPORINE [Concomitant]
  3. PREDNISONE [Concomitant]
  4. METOPROLOL [Concomitant]
  5. HYDRALAZINE [Concomitant]
  6. ASPIRIN [Concomitant]
  7. MULTI-VITAMIN [Concomitant]
  8. LOVAZA [Concomitant]

REACTIONS (7)
  - BURNING SENSATION [None]
  - FATIGUE [None]
  - HEPATIC ENZYME INCREASED [None]
  - PAIN [None]
  - PARANOIA [None]
  - PRODUCT QUALITY ISSUE [None]
  - SUSPICIOUSNESS [None]
